FAERS Safety Report 8393916-5 (Version None)
Quarter: 2012Q2

REPORT INFORMATION
  Report Type: 
  Country: None (occurrence: None)
  Receive Date: 20120516
  Receipt Date: 20120502
  Transmission Date: 20120825
  Serious: Yes (Hospitalization)
  Sender: FDA-Public Use
  Company Number: DE-1191713

PATIENT
  Age: 61 Year
  Sex: Female

DRUGS (2)
  1. AZOPT [Suspect]
     Dosage: (OPHTHALMIC)
     Route: 047
  2. SIMVASTATIN [Concomitant]

REACTIONS (1)
  - SINUS TACHYCARDIA [None]
